FAERS Safety Report 9626411 (Version 1)
Quarter: 2013Q4

REPORT INFORMATION
  Report Type: Spontaneous
  Country: IT (occurrence: IT)
  Receive Date: 20131016
  Receipt Date: 20131016
  Transmission Date: 20140711
  Serious: Yes (Hospitalization)
  Sender: FDA-Public Use
  Company Number: IT-SA-2013SA102839

PATIENT
  Age: 81 Year
  Sex: Female
  Weight: 48 kg

DRUGS (7)
  1. CLEXANE [Suspect]
     Indication: ATRIAL FIBRILLATION
     Route: 058
     Dates: start: 20121201, end: 20131002
  2. CARDIOASPIRIN [Suspect]
     Indication: CORONARY ARTERY DISEASE
     Dosage: STRENGTH: 100 MG GASTRORESISTANT TAB
     Route: 048
     Dates: start: 20120101, end: 20131002
  3. PANTOPRAZOLE SODIUM [Concomitant]
     Indication: PROPHYLAXIS AGAINST GASTROINTESTINAL ULCER
     Route: 048
     Dates: start: 20120101, end: 20131002
  4. CALCIUM CARBONATE [Concomitant]
     Indication: CALCIUM DEFICIENCY
     Route: 048
     Dates: start: 20120101, end: 20131002
  5. CITALOPRAM [Concomitant]
     Indication: INSOMNIA
     Route: 048
     Dates: start: 20120101, end: 20131002
  6. LANOXIN [Concomitant]
     Indication: ATRIAL FIBRILLATION
     Dosage: STRENGTH: 0.125 MG
     Route: 048
     Dates: start: 20120101, end: 20131002
  7. FERROGRAD [Concomitant]
     Indication: IRON DEFICIENCY
     Dosage: STRENGTH: 105 (UNIT NOT REPORTED)
     Route: 048
     Dates: start: 20120101, end: 20131002

REACTIONS (2)
  - Effusion [Not Recovered/Not Resolved]
  - Intracranial haematoma [Not Recovered/Not Resolved]
